FAERS Safety Report 23892839 (Version 1)
Quarter: 2024Q2

REPORT INFORMATION
  Report Type: Spontaneous
  Country: FR (occurrence: FR)
  Receive Date: 20240524
  Receipt Date: 20240524
  Transmission Date: 20240715
  Serious: Yes (Other)
  Sender: FDA-Public Use
  Company Number: FR-AFSSAPS-AVNT2024000373

PATIENT
  Age: 66 Year
  Sex: Male

DRUGS (1)
  1. ZOLPIDEM [Suspect]
     Active Substance: ZOLPIDEM TARTRATE
     Indication: Product used for unknown indication
     Dosage: UNK (AT LEAST 2 TABS OF 10 MG IN THE EVENING)
     Route: 048
     Dates: start: 202303

REACTIONS (1)
  - Drug use disorder [Not Recovered/Not Resolved]
